FAERS Safety Report 16174650 (Version 1)
Quarter: 2019Q2

REPORT INFORMATION
  Report Type: Report from Study
  Country: US (occurrence: US)
  Receive Date: 20190409
  Receipt Date: 20190409
  Transmission Date: 20190711
  Serious: Yes (Other)
  Sender: FDA-Public Use
  Company Number: US-BAYER-2019-067101

PATIENT
  Age: 62 Year
  Sex: Female

DRUGS (1)
  1. BETASERON [Suspect]
     Active Substance: INTERFERON BETA-1B
     Indication: RELAPSING-REMITTING MULTIPLE SCLEROSIS
     Dosage: 8 MIU, QOD
     Route: 058
     Dates: start: 20051129

REACTIONS (4)
  - Diplopia [Not Recovered/Not Resolved]
  - Product dose omission [None]
  - Cataract [Not Recovered/Not Resolved]
  - Product dose omission [None]

NARRATIVE: CASE EVENT DATE: 2010
